FAERS Safety Report 8047615-X (Version None)
Quarter: 2012Q1

REPORT INFORMATION
  Report Type: 
  Country: None (occurrence: None)
  Receive Date: 20120116
  Receipt Date: 20120110
  Transmission Date: 20120608
  Serious: Yes (Hospitalization)
  Sender: FDA-Public Use
  Company Number: US-GLAXOSMITHKLINE-B0762639A

PATIENT
  Age: 52 Year
  Sex: Male

DRUGS (1)
  1. AVANDIA [Suspect]
     Indication: DIABETES MELLITUS
     Dosage: 4MG TWICE PER DAY
     Route: 048
     Dates: start: 20000701, end: 20070201

REACTIONS (7)
  - CARDIAC FAILURE CONGESTIVE [None]
  - STAPHYLOCOCCAL INFECTION [None]
  - DYSPNOEA [None]
  - ORTHOPNOEA [None]
  - CORONARY ARTERY DISEASE [None]
  - NAUSEA [None]
  - CORONARY ARTERY REOCCLUSION [None]
